FAERS Safety Report 9209564 (Version 1)
Quarter: 2013Q2

REPORT INFORMATION
  Report Type: Spontaneous
  Country: DK (occurrence: FR)
  Receive Date: 20130404
  Receipt Date: 20130404
  Transmission Date: 20140414
  Serious: Yes (Hospitalization)
  Sender: FDA-Public Use
  Company Number: FR-FRI-1000043957

PATIENT
  Age: 99 Year
  Sex: Female

DRUGS (6)
  1. ESCITALOPRAM [Suspect]
     Indication: MAJOR DEPRESSION
     Dosage: 5 MG
     Dates: start: 20121120, end: 20121121
  2. SERESTA [Suspect]
     Indication: HALLUCINATION
     Dosage: 25 MG
     Route: 048
     Dates: start: 20121121, end: 20121121
  3. FUROSEMIDE [Concomitant]
  4. ALDACTONE [Concomitant]
  5. BISOPROLOL [Concomitant]
  6. EFFEXOR [Concomitant]
     Indication: MAJOR DEPRESSION
     Dates: start: 20121115, end: 20121120

REACTIONS (2)
  - Respiratory distress [Recovered/Resolved]
  - Coma [Recovered/Resolved]
